FAERS Safety Report 21765776 (Version 1)
Quarter: 2022Q4

REPORT INFORMATION
  Report Type: Spontaneous
  Country: SK (occurrence: SK)
  Receive Date: 20221222
  Receipt Date: 20221222
  Transmission Date: 20230113
  Serious: No
  Sender: FDA-Public Use
  Company Number: SK-PADAGIS-2022PAD01116

PATIENT

DRUGS (2)
  1. BETAMETHASONE DIPROPIONATE [Suspect]
     Active Substance: BETAMETHASONE DIPROPIONATE
     Indication: Granuloma annulare
     Dosage: UNK
     Route: 061
  2. TOCILIZUMAB [Concomitant]
     Active Substance: TOCILIZUMAB
     Indication: Rheumatoid arthritis
     Dosage: 162 MG EVERY WEEK
     Route: 058
     Dates: start: 201906, end: 202011

REACTIONS (1)
  - Drug ineffective [Unknown]
